FAERS Safety Report 9502733 (Version 1)
Quarter: 2013Q1

REPORT INFORMATION
  Report Type: Spontaneous
  Country: US (occurrence: None)
  Receive Date: 20130225
  Receipt Date: 20130225
  Transmission Date: 20140127
  Serious: Yes (Other)
  Sender: FDA-Public Use
  Company Number: 364320

PATIENT
  Age: 43 Year
  Sex: Male
  Weight: 90.7 kg

DRUGS (8)
  1. VICTOZA [Suspect]
     Indication: TYPE 2 DIABETES MELLITUS
     Route: 058
     Dates: start: 20121030, end: 20121109
  2. METFORMIN(METFORMIN) [Concomitant]
     Dates: start: 2000
  3. LISINOPRIL(LISINOPRIL) [Suspect]
  4. ADVAIR [Concomitant]
  5. CRESTOR [Concomitant]
  6. VENTOLIN [Concomitant]
  7. LORAZEPAM [Concomitant]
  8. HCT [Concomitant]

REACTIONS (1)
  - Pancreatitis [None]
